FAERS Safety Report 11096182 (Version 1)
Quarter: 2015Q2

REPORT INFORMATION
  Report Type: Spontaneous
  Country: US (occurrence: None)
  Receive Date: 20150505
  Receipt Date: 20150505
  Transmission Date: 20150821
  Serious: Yes (Hospitalization)
  Sender: FDA-Public Use
  Company Number: 2848165

PATIENT
  Age: 66 Year
  Sex: Male

DRUGS (5)
  1. WARFARIN [Concomitant]
     Active Substance: WARFARIN
  2. AMIODARONE [Suspect]
     Active Substance: AMIODARONE
     Indication: VENTRICULAR TACHYCARDIA
  3. ASPIRIN. [Concomitant]
     Active Substance: ASPIRIN
  4. MILRINONE [Concomitant]
     Active Substance: MILRINONE
  5. TORSEMIDE. [Concomitant]
     Active Substance: TORSEMIDE

REACTIONS (2)
  - Pulmonary alveolar haemorrhage [None]
  - Respiratory failure [None]
